FAERS Safety Report 15751841 (Version 2)
Quarter: 2025Q3

REPORT INFORMATION
  Report Type: Spontaneous
  Country: US (occurrence: US)
  Receive Date: 20181221
  Receipt Date: 20250829
  Transmission Date: 20251021
  Serious: Yes (Hospitalization, Other)
  Sender: ALKEM
  Company Number: None

PATIENT
  Age: 61 Year
  Sex: Female

DRUGS (8)
  1. MYCOPHENOLATE MOFETIL [Suspect]
     Active Substance: MYCOPHENOLATE MOFETIL
     Indication: Immunosuppression
     Route: 065
  2. TACROLIMUS [Suspect]
     Active Substance: TACROLIMUS
     Indication: Immunosuppression
     Route: 065
  3. ISONIAZID [Suspect]
     Active Substance: ISONIAZID
     Indication: Thyroid tuberculosis
     Route: 065
  4. ETHAMBUTOL [Suspect]
     Active Substance: ETHAMBUTOL HYDROCHLORIDE
     Indication: Thyroid tuberculosis
     Route: 065
  5. PYRAZINAMIDE [Suspect]
     Active Substance: PYRAZINAMIDE
     Indication: Thyroid tuberculosis
     Route: 065
  6. RIFABUTIN [Suspect]
     Active Substance: RIFABUTIN
     Indication: Thyroid tuberculosis
     Route: 065
  7. DAPSONE [Concomitant]
     Active Substance: DAPSONE
     Indication: Antibiotic prophylaxis
     Route: 065
  8. VALGANCICLOVIR [Concomitant]
     Active Substance: VALGANCICLOVIR
     Indication: Antibiotic prophylaxis
     Route: 065

REACTIONS (7)
  - Unmasking of previously unidentified disease [Recovering/Resolving]
  - Neck mass [Not Recovered/Not Resolved]
  - Jugular vein thrombosis [Unknown]
  - Thyroid tuberculosis [Recovering/Resolving]
  - Disseminated tuberculosis [Not Recovered/Not Resolved]
  - Mycobacterial infection [Recovering/Resolving]
  - Drug ineffective [Unknown]
